FAERS Safety Report 13163408 (Version 1)
Quarter: 2017Q1

REPORT INFORMATION
  Report Type: Spontaneous
  Country: None (occurrence: US)
  Receive Date: 20170126
  Receipt Date: 20170126
  Transmission Date: 20170428
  Serious: No
  Sender: FDA-Public Use
  Company Number: None

PATIENT
  Age: 29 Year
  Sex: Female
  Weight: 60 kg

DRUGS (3)
  1. FOLCI M12 (ACTIVE INGREDIENTS: METHYLCOBALAMIN, FOLIC ACID) [Suspect]
     Active Substance: FOLIC ACID\METHYLCOBALAMIN
     Indication: SUPPLEMENTATION THERAPY
     Route: 048
     Dates: start: 20170123
  2. DIOXINATE [Concomitant]
  3. VOMIKIND (ACTIVE INGREDIENT: ONDANSETRON) [Suspect]
     Active Substance: ONDANSETRON HYDROCHLORIDE
     Indication: NAUSEA
     Dates: start: 20170123

REACTIONS (1)
  - Constipation [None]

NARRATIVE: CASE EVENT DATE: 20170125
